FAERS Safety Report 9412610 (Version 5)
Quarter: 2014Q1

REPORT INFORMATION
  Report Type: Report from Study
  Country: US (occurrence: US)
  Receive Date: 20130722
  Receipt Date: 20140102
  Transmission Date: 20141002
  Serious: Yes (Other)
  Sender: FDA-Public Use
  Company Number: US-ROCHE-1248012

PATIENT
  Age: 54 Year
  Sex: Female

DRUGS (15)
  1. HERCEPTIN [Suspect]
     Indication: OVARIAN CANCER
     Route: 042
     Dates: start: 20130513, end: 20130513
  2. HERCEPTIN [Suspect]
     Route: 042
     Dates: start: 20130520, end: 20130624
  3. HERCEPTIN [Suspect]
     Route: 065
     Dates: start: 20130701
  4. HERCEPTIN [Suspect]
     Route: 050
     Dates: start: 20130826
  5. HERCEPTIN [Suspect]
     Route: 050
     Dates: start: 20130909
  6. HERCEPTIN [Suspect]
     Route: 050
     Dates: start: 20130916
  7. HERCEPTIN [Suspect]
     Route: 050
     Dates: start: 20130923
  8. HERCEPTIN [Suspect]
     Route: 050
     Dates: start: 20130930
  9. HERCEPTIN [Suspect]
     Route: 050
     Dates: start: 20131007
  10. PACLITAXEL [Concomitant]
     Route: 042
     Dates: start: 20130513
  11. RANITIDINE [Concomitant]
     Route: 042
     Dates: start: 20130513
  12. DEXAMETHASONE [Concomitant]
     Route: 042
  13. DARBEPOETIN ALFA [Concomitant]
     Route: 042
     Dates: start: 20130624
  14. DARBEPOETIN ALFA [Concomitant]
     Route: 058
     Dates: start: 20130826
  15. DARBEPOETIN ALFA [Concomitant]
     Route: 058
     Dates: start: 20131007

REACTIONS (5)
  - Pulmonary infarction [Unknown]
  - Haemoglobin decreased [Unknown]
  - Haematocrit decreased [Unknown]
  - Infarction [Unknown]
  - Pulmonary embolism [Unknown]
